FAERS Safety Report 5465279-6 (Version None)
Quarter: 2007Q3

REPORT INFORMATION
  Report Type: 
  Country: None (occurrence: None)
  Receive Date: 20070924
  Receipt Date: 20070911
  Transmission Date: 20080115
  Serious: Yes (Death)
  Sender: FDA-Public Use
  Company Number: US-KINGPHARMUSA00001-K200701094

PATIENT

DRUGS (1)
  1. EPIPEN [Suspect]
     Dosage: 3 INJECTIONS
     Route: 030
     Dates: start: 20070821, end: 20070821

REACTIONS (3)
  - AGGRESSION [None]
  - CARDIAC ARREST [None]
  - DRUG INEFFECTIVE [None]
